FAERS Safety Report 9839523 (Version 2)
Quarter: 2014Q1

REPORT INFORMATION
  Report Type: Spontaneous
  Country: JP (occurrence: JP)
  Receive Date: 20140124
  Receipt Date: 20140124
  Transmission Date: 20141002
  Serious: Yes (Death)
  Sender: FDA-Public Use
  Company Number: JP-009507513-2009SP005231

PATIENT
  Age: 88 Year
  Sex: Male

DRUGS (2)
  1. DIAZOXIDE [Suspect]
     Indication: INSULINOMA
     Route: 048
  2. DIAZOXIDE [Suspect]
     Dosage: UNK
     Route: 048

REACTIONS (2)
  - Death [Fatal]
  - Decreased appetite [Unknown]
